FAERS Safety Report 7512797-2 (Version None)
Quarter: 2011Q2

REPORT INFORMATION
  Report Type: 
  Country: None (occurrence: None)
  Receive Date: 20110531
  Receipt Date: 20110523
  Transmission Date: 20111010
  Serious: Yes (Other)
  Sender: FDA-Public Use
  Company Number: B0721077A

PATIENT
  Age: 42 Year
  Sex: Female

DRUGS (8)
  1. ALFENTANIL [Concomitant]
     Indication: INDUCTION OF ANAESTHESIA
  2. MORPHINE [Concomitant]
     Indication: INDUCTION OF ANAESTHESIA
  3. PROSTIGMIN BROMIDE [Concomitant]
     Indication: INDUCTION OF ANAESTHESIA
  4. PROPOFOL [Concomitant]
     Indication: INDUCTION OF ANAESTHESIA
  5. ATRACURIUM BESYLATE [Concomitant]
     Indication: INDUCTION OF ANAESTHESIA
  6. ONDANSETRON [Suspect]
     Indication: ANTIEMETIC SUPPORTIVE CARE
     Route: 042
     Dates: start: 20110405, end: 20110405
  7. MIDAZOLAM HCL [Concomitant]
     Indication: INDUCTION OF ANAESTHESIA
  8. GLYCOPYRROLATE [Concomitant]
     Indication: INDUCTION OF ANAESTHESIA

REACTIONS (5)
  - UNRESPONSIVE TO STIMULI [None]
  - SOMNOLENCE [None]
  - GRAND MAL CONVULSION [None]
  - OXYGEN SATURATION DECREASED [None]
  - TREMOR [None]
